FAERS Safety Report 15688833 (Version 5)
Quarter: 2021Q1

REPORT INFORMATION
  Report Type: Report from Study
  Country: CN (occurrence: CN)
  Receive Date: 20181205
  Receipt Date: 20210225
  Transmission Date: 20210419
  Serious: Yes (Hospitalization)
  Sender: FDA-Public Use
  Company Number: CN-ROCHE-2223706

PATIENT
  Age: 63 Year
  Sex: Male
  Weight: 60 kg

DRUGS (24)
  1. TROPISETRON HYDROCHLORIDE [Concomitant]
     Active Substance: TROPISETRON HYDROCHLORIDE
     Dates: start: 20180927, end: 20180927
  2. FOLIUM ARTEMISIAE ARGYI [Concomitant]
     Dates: start: 20181223, end: 20181226
  3. FOLIUM ARTEMISIAE ARGYI [Concomitant]
     Dates: start: 20190111, end: 20190113
  4. TROPISETRON HYDROCHLORIDE [Concomitant]
     Active Substance: TROPISETRON HYDROCHLORIDE
     Dates: start: 20181108, end: 20181108
  5. TROPISETRON HYDROCHLORIDE [Concomitant]
     Active Substance: TROPISETRON HYDROCHLORIDE
     Dates: start: 20190111, end: 20190111
  6. SENNAE FOLIUM [Concomitant]
     Dates: start: 20181109, end: 20181109
  7. SENNAE FOLIUM [Concomitant]
     Dates: start: 20190111, end: 20190111
  8. SENNAE FOLIUM [Concomitant]
     Dates: start: 20181222, end: 20181222
  9. FOLIUM ARTEMISIAE ARGYI [Concomitant]
     Indication: RASH
     Dates: start: 20181019, end: 20181019
  10. FOLIUM ARTEMISIAE ARGYI [Concomitant]
     Dates: start: 20181109, end: 20181109
  11. CISPLATIN. [Suspect]
     Active Substance: CISPLATIN
     Indication: NON-SMALL CELL LUNG CANCER STAGE IV
     Dosage: MOST RECENT DOSE 130 MG OF CISPLATIN PRIOR TO ADVERSE EVENT ONSET: 13/JUN/2018
     Route: 042
     Dates: start: 20180428
  12. TROPISETRON HYDROCHLORIDE [Concomitant]
     Active Substance: TROPISETRON HYDROCHLORIDE
     Dates: start: 20181018, end: 20181018
  13. SENNAE FOLIUM [Concomitant]
     Dates: start: 20190125, end: 20190128
  14. FOLIUM ARTEMISIAE ARGYI [Concomitant]
     Dates: start: 20180928, end: 20180928
  15. VITAMIN B12 [Concomitant]
     Active Substance: CYANOCOBALAMIN
     Dates: start: 20180428
  16. TROPISETRON HYDROCHLORIDE [Concomitant]
     Active Substance: TROPISETRON HYDROCHLORIDE
     Dates: start: 20181221, end: 20181221
  17. SENNAE FOLIUM [Concomitant]
     Dates: start: 20180817, end: 20180819
  18. SODIUM CHLORIDE. [Concomitant]
     Active Substance: SODIUM CHLORIDE
     Indication: HYPONATRAEMIA
     Dates: start: 20190120, end: 20190120
  19. PEMETREXED. [Suspect]
     Active Substance: PEMETREXED
     Indication: NON-SMALL CELL LUNG CANCER STAGE IV
     Dosage: MOST RECENT DOSE 885 MG OF PEMETREXED PRIOR TO ADVERSE EVEN ONSET: 08/NOV/2018
     Route: 042
     Dates: start: 20180428
  20. SENNAE FOLIUM [Concomitant]
     Indication: CONSTIPATION
     Dates: start: 20181019, end: 20181019
  21. FOLIUM ARTEMISIAE ARGYI [Concomitant]
     Dates: start: 20180906, end: 20180906
  22. ATEZOLIZUMAB. [Suspect]
     Active Substance: ATEZOLIZUMAB
     Indication: NON-SMALL CELL LUNG CANCER STAGE IV
     Dosage: MOST RECENT DOSE 1200 MG  OF ATEZOLIZUMAB PRIOR TO ADVERSE EVENT ONSET: 08/NOV/2018
     Route: 042
     Dates: start: 20180428
  23. TROPISETRON HYDROCHLORIDE [Concomitant]
     Active Substance: TROPISETRON HYDROCHLORIDE
     Dates: start: 20180726, end: 20180726
  24. TROPISETRON HYDROCHLORIDE [Concomitant]
     Active Substance: TROPISETRON HYDROCHLORIDE
     Dates: start: 20180815, end: 20180815

REACTIONS (1)
  - Blood creatine phosphokinase increased [Recovered/Resolved]

NARRATIVE: CASE EVENT DATE: 20180814
